FAERS Safety Report 6811425-9 (Version None)
Quarter: 2010Q2

REPORT INFORMATION
  Report Type: 
  Country: None (occurrence: None)
  Receive Date: 20100630
  Receipt Date: 20100625
  Transmission Date: 20101027
  Serious: Yes (Other)
  Sender: FDA-Public Use
  Company Number: US-ABBOTT-08P-163-0472695-00

PATIENT
  Sex: Female
  Weight: 128.48 kg

DRUGS (7)
  1. LUPRON DEPOT [Suspect]
     Indication: PELVIC PAIN
     Route: 030
     Dates: start: 20060201, end: 20080401
  2. LUPRON DEPOT [Suspect]
     Indication: OVARIAN CYST
  3. LEXAPRO [Concomitant]
     Indication: DRUG USE FOR UNKNOWN INDICATION
     Route: 048
  4. PREMPRO [Concomitant]
     Indication: DRUG USE FOR UNKNOWN INDICATION
     Dates: end: 20060101
  5. PROTONIX [Concomitant]
     Indication: DRUG USE FOR UNKNOWN INDICATION
  6. NEXIUM [Concomitant]
     Indication: DRUG USE FOR UNKNOWN INDICATION
  7. LIPITOR [Concomitant]
     Indication: DRUG USE FOR UNKNOWN INDICATION

REACTIONS (16)
  - AMNESIA [None]
  - BLINDNESS UNILATERAL [None]
  - BONE PAIN [None]
  - HOT FLUSH [None]
  - HYPERHIDROSIS [None]
  - HYPOTHYROIDISM [None]
  - LOSS OF LIBIDO [None]
  - MALAISE [None]
  - MIGRAINE [None]
  - OEDEMA PERIPHERAL [None]
  - OPTIC NEURITIS [None]
  - SYSTEMIC LUPUS ERYTHEMATOSUS [None]
  - UNEVALUABLE EVENT [None]
  - VITAMIN D DECREASED [None]
  - VULVOVAGINAL DRYNESS [None]
  - WEIGHT INCREASED [None]
